FAERS Safety Report 15632831 (Version 1)
Quarter: 2018Q4

REPORT INFORMATION
  Report Type: Spontaneous
  Country: US (occurrence: US)
  Receive Date: 20181119
  Receipt Date: 20181119
  Transmission Date: 20190205
  Serious: No
  Sender: FDA-Public Use
  Company Number: None

PATIENT
  Age: 54 Year
  Sex: Male
  Weight: 94.5 kg

DRUGS (4)
  1. ALFUZOSIN [Concomitant]
     Active Substance: ALFUZOSIN
  2. ELMIRON [Suspect]
     Active Substance: PENTOSAN POLYSULFATE SODIUM
     Indication: CYSTITIS INTERSTITIAL
     Dosage: ?          QUANTITY:1 CAPSULE(S);?
     Route: 048
  3. CRESTOR [Concomitant]
     Active Substance: ROSUVASTATIN CALCIUM
  4. OMAPRAZOLE [Concomitant]

REACTIONS (6)
  - Insomnia [None]
  - Anxiety [None]
  - Abdominal discomfort [None]
  - Dyspepsia [None]
  - Abnormal dreams [None]
  - Restlessness [None]

NARRATIVE: CASE EVENT DATE: 20181118
